FAERS Safety Report 8590023-3 (Version None)
Quarter: 2012Q3

REPORT INFORMATION
  Report Type: 
  Country: None (occurrence: None)
  Receive Date: 20120813
  Receipt Date: 20120802
  Transmission Date: 20120928
  Serious: No
  Sender: FDA-Public Use
  Company Number: US-ASTRAZENECA-2012SE55153

PATIENT
  Age: 53 Year
  Sex: Male
  Weight: 93 kg

DRUGS (3)
  1. DIOVAN [Concomitant]
     Indication: HYPERTENSION
  2. CRESTOR [Suspect]
     Indication: BLOOD CHOLESTEROL ABNORMAL
     Route: 048
  3. AMLODIPINE [Concomitant]
     Indication: HYPERTENSION

REACTIONS (4)
  - PAIN IN EXTREMITY [None]
  - CARPAL TUNNEL SYNDROME [None]
  - ARTHRALGIA [None]
  - TRIGGER FINGER [None]
